FAERS Safety Report 9026012 (Version 1)
Quarter: 2012Q4

REPORT INFORMATION
  Report Type: Spontaneous
  Country: US (occurrence: None)
  Receive Date: 20121214
  Receipt Date: 20121214
  Transmission Date: 20130627
  Serious: Yes (Hospitalization)
  Sender: FDA-Public Use
  Company Number: None

PATIENT
  Age: 68 Year
  Sex: Male
  Weight: 74.2 kg

DRUGS (1)
  1. NITROFURANTOIN [Suspect]
     Indication: UTI
     Route: 048
     Dates: start: 20121025, end: 20121030

REACTIONS (4)
  - Rash generalised [None]
  - Rash maculo-papular [None]
  - Rash pruritic [None]
  - Erythema multiforme [None]
